FAERS Safety Report 23457736 (Version 3)
Quarter: 2024Q1

REPORT INFORMATION
  Report Type: Report from Study
  Country: CA (occurrence: CA)
  Receive Date: 20240130
  Receipt Date: 20240304
  Transmission Date: 20240409
  Serious: Yes (Other)
  Sender: FDA-Public Use
  Company Number: CA-TEVA-VS-3136581

PATIENT
  Age: 59 Year
  Sex: Female

DRUGS (5)
  1. AJOVY [Suspect]
     Active Substance: FREMANEZUMAB-VFRM
     Indication: Migraine
     Dosage: MONTHLY, LAST DOSE ADMINISTERED: UNKNOWN
     Route: 058
     Dates: start: 20231113, end: 202401
  2. GABAPENTIN [Concomitant]
     Active Substance: GABAPENTIN
  3. AMITRIPTYLINE [Concomitant]
     Active Substance: AMITRIPTYLINE
  4. TOPIRAMATE [Concomitant]
     Active Substance: TOPIRAMATE
  5. METOPROLOL [Concomitant]
     Active Substance: METOPROLOL

REACTIONS (7)
  - Myocardial infarction [Unknown]
  - Suicidal ideation [Unknown]
  - Depression [Recovering/Resolving]
  - Depressed mood [Not Recovered/Not Resolved]
  - Negative thoughts [Unknown]
  - Inappropriate schedule of product administration [Unknown]
  - Crying [Unknown]

NARRATIVE: CASE EVENT DATE: 20230101
